FAERS Safety Report 9979588 (Version 1)
Quarter: 2014Q1

REPORT INFORMATION
  Report Type: Report from Study
  Country: US (occurrence: US)
  Receive Date: 20140306
  Receipt Date: 20140306
  Transmission Date: 20141002
  Serious: No
  Sender: FDA-Public Use
  Company Number: US-ABBVIE-13P-163-1168279-00

PATIENT
  Age: 56 Year
  Sex: Male
  Weight: 120.31 kg

DRUGS (3)
  1. HUMIRA [Suspect]
     Indication: PSORIATIC ARTHROPATHY
     Dates: start: 2013, end: 201308
  2. HUMIRA [Suspect]
     Dates: start: 201308, end: 201309
  3. TRILIPIX [Concomitant]
     Indication: PRODUCT USED FOR UNKNOWN INDICATION

REACTIONS (3)
  - White blood cell count abnormal [Recovered/Resolved]
  - Red blood cell count abnormal [Recovered/Resolved]
  - Headache [Recovered/Resolved]
